FAERS Safety Report 5714735-1 (Version None)
Quarter: 2008Q2

REPORT INFORMATION
  Report Type: 
  Country: None (occurrence: None)
  Receive Date: 20080423
  Receipt Date: 20050512
  Transmission Date: 20081010
  Serious: Yes (Death)
  Sender: FDA-Public Use
  Company Number: DE-ROCHE-404421

PATIENT
  Sex: Female
  Weight: 82 kg

DRUGS (5)
  1. CAPECITABINE [Suspect]
     Dosage: TWO WEEKS TREATMENT FOLLOWED BY ONE WEEK REST PERIOD.
     Route: 048
     Dates: start: 20050404, end: 20050505
  2. BORTEZOMIB [Suspect]
     Dosage: GIVEN ON DAYS 1, 4, 8 AND 11 OF EACH THREE WEEK CYCLE.
     Route: 042
     Dates: start: 20050404, end: 20050505
  3. GRANISETRON HYDROCHLORIDE [Suspect]
     Indication: NAUSEA
     Route: 065
     Dates: start: 20050505, end: 20050506
  4. DEXAMETHASONE TAB [Suspect]
     Indication: DRUG USE FOR UNKNOWN INDICATION
     Route: 065
     Dates: start: 20050505, end: 20050506
  5. PAMIDRONIC ACID [Suspect]
     Indication: METASTASES TO BONE
     Dosage: FREQUENCY REPORTED AS ^ALL 4 WEEKS^.
     Route: 065
     Dates: end: 20050504

REACTIONS (1)
  - DEATH [None]
